FAERS Safety Report 5347808-6 (Version None)
Quarter: 2007Q2

REPORT INFORMATION
  Report Type: 
  Country: None (occurrence: None)
  Receive Date: 20070606
  Receipt Date: 20070523
  Transmission Date: 20071010
  Serious: Yes (Death)
  Sender: FDA-Public Use
  Company Number: DE-ASTRAZENECA-2007PK00660

PATIENT

DRUGS (1)
  1. CASODEX [Suspect]
     Route: 048

REACTIONS (1)
  - HEPATIC FAILURE [None]
